FAERS Safety Report 7231827-9 (Version None)
Quarter: 2011Q1

REPORT INFORMATION
  Report Type: 
  Country: None (occurrence: None)
  Receive Date: 20110118
  Receipt Date: 20110111
  Transmission Date: 20110831
  Serious: Yes (Hospitalization, Other)
  Sender: FDA-Public Use
  Company Number: US-TEVA-262969USA

PATIENT
  Sex: Female

DRUGS (4)
  1. CIPROFLOXACIN [Suspect]
  2. METHOTREXATE SOLUTION FOR INJECTION, 25 MG/ML [Suspect]
  3. ETANERCEPT [Suspect]
     Indication: PSORIATIC ARTHROPATHY
     Route: 058
     Dates: start: 20021003
  4. CELECOXIB [Concomitant]

REACTIONS (2)
  - HYPERSENSITIVITY [None]
  - OVARIAN MASS [None]
